FAERS Safety Report 4475471-5 (Version None)
Quarter: 2004Q4

REPORT INFORMATION
  Report Type: 
  Country: None (occurrence: None)
  Receive Date: 20041014
  Receipt Date: 20041014
  Transmission Date: 20050328
  Serious: Yes (Other)
  Sender: FDA-Public Use
  Company Number: None

PATIENT
  Age: 22 Year
  Sex: Male
  Weight: 61.2356 kg

DRUGS (4)
  1. EFFEXOR XR [Suspect]
     Indication: ANXIETY
     Dosage: 225 MG DAILY
     Dates: start: 20040901, end: 20040930
  2. EFFEXOR XR [Suspect]
     Indication: DEPRESSION
     Dosage: 225 MG DAILY
     Dates: start: 20040901, end: 20040930
  3. EFFEXOR XR [Suspect]
     Indication: ANXIETY
     Dosage: 75 MG DAILY
     Dates: start: 20040825, end: 20040901
  4. EFFEXOR XR [Suspect]
     Indication: DEPRESSION
     Dosage: 75 MG DAILY
     Dates: start: 20040825, end: 20040901

REACTIONS (13)
  - ABDOMINAL PAIN UPPER [None]
  - AGGRESSION [None]
  - ANOREXIA [None]
  - CHEST PAIN [None]
  - CRYING [None]
  - DRUG WITHDRAWAL CONVULSIONS [None]
  - EMOTIONAL DISORDER [None]
  - EYE PAIN [None]
  - FEELING ABNORMAL [None]
  - HEART RATE INCREASED [None]
  - IRRITABILITY [None]
  - MOVEMENT DISORDER [None]
  - SELF-INJURIOUS IDEATION [None]
